FAERS Safety Report 8225227-2 (Version None)
Quarter: 2012Q1

REPORT INFORMATION
  Report Type: 
  Country: None (occurrence: None)
  Receive Date: 20120321
  Receipt Date: 20120309
  Transmission Date: 20120608
  Serious: Yes (Hospitalization)
  Sender: FDA-Public Use
  Company Number: FR-BRISTOL-MYERS SQUIBB COMPANY-16446569

PATIENT
  Age: 91 Year
  Sex: Female

DRUGS (8)
  1. AMLODIPINE BESYLATE [Concomitant]
     Indication: HYPERTENSION
     Dosage: 5 MG CAPS
     Route: 048
     Dates: start: 20110801
  2. OXAZEPAM [Concomitant]
     Indication: INSOMNIA
     Dosage: 1/2 TABLET IN THE EVENING
     Route: 048
     Dates: start: 20110301, end: 20120125
  3. CARBAMAZEPINE [Suspect]
     Indication: EPILEPSY
     Dosage: 1DF:200MG TAB 1/2 TAB TWICE DAILY ON 19JAN12-24JAN12,1 TAB TWICE DAILY FROM 24JAN12-31JAN12
     Dates: start: 20120119, end: 20120131
  4. IRBESARTAN [Suspect]
     Indication: HYPERTENSION
     Route: 048
     Dates: start: 20120125
  5. KEPPRA [Suspect]
     Indication: EPILEPSY
     Dosage: 1DF: 500MG 1/2 TAB TWICW DAILY FROM 30JUL11-19JAN12,1 TAB TWICE A DAY SINCE 19JAN12-ONG
     Dates: start: 20110730
  6. ASPIRIN [Concomitant]
     Indication: CEREBROVASCULAR ACCIDENT
     Route: 048
     Dates: start: 20110301
  7. BISOPROLOL FUMARATE [Suspect]
     Indication: HYPERTENSION
     Dosage: THERAPY ON 30JAN12,DAILY DOSE 1.25MG/D
     Dates: start: 20110801
  8. MIANSERIN HCL [Concomitant]
     Indication: DEPRESSION
     Route: 048
     Dates: start: 20110801

REACTIONS (7)
  - LOSS OF CONSCIOUSNESS [None]
  - HEADACHE [None]
  - BRADYCARDIA [None]
  - MALAISE [None]
  - URINARY INCONTINENCE [None]
  - VOMITING [None]
  - VITREOUS FLOATERS [None]
